FAERS Safety Report 7082600-6 (Version None)
Quarter: 2010Q3

REPORT INFORMATION
  Report Type: 
  Country: None (occurrence: None)
  Receive Date: 20100929
  Receipt Date: 20100610
  Transmission Date: 20110219
  Serious: No
  Sender: FDA-Public Use
  Company Number: US-WYE-H15862210

PATIENT
  Age: 75 Year
  Sex: Female
  Weight: 70.82 kg

DRUGS (7)
  1. PRISTIQ [Suspect]
     Indication: DEPRESSION
     Dosage: 50 MG 1X PER 1 DAY, ORAL
     Route: 048
     Dates: start: 20100421
  2. DIGOXIN [Concomitant]
  3. DILTIAZEM [Concomitant]
  4. WARFARIN SODIUM [Concomitant]
  5. PROTONIX [Concomitant]
  6. DIAZEPAM [Concomitant]
  7. MELOXICAM [Concomitant]

REACTIONS (2)
  - DYSPEPSIA [None]
  - FLATULENCE [None]
